FAERS Safety Report 20579841 (Version 1)
Quarter: 2022Q1

REPORT INFORMATION
  Report Type: Spontaneous
  Country: CA (occurrence: CA)
  Receive Date: 20220310
  Receipt Date: 20220310
  Transmission Date: 20220423
  Serious: Yes (Life-Threatening, Other)
  Sender: FDA-Public Use
  Company Number: CA-PFIZER INC-202200358474

PATIENT
  Age: 2 Year
  Sex: Male
  Weight: 14 kg

DRUGS (18)
  1. CYTARABINE [Suspect]
     Active Substance: CYTARABINE
     Indication: Acute myeloid leukaemia recurrent
     Dosage: 1430 MG, 2X/DAY
     Route: 042
  2. CYTARABINE [Suspect]
     Active Substance: CYTARABINE
     Dosage: 1430 MG, 2X/DAY
     Route: 042
  3. ALTEPLASE [Concomitant]
     Active Substance: ALTEPLASE
  4. AMOXICILLIN [Concomitant]
     Active Substance: AMOXICILLIN
  5. CHOLECALCIFEROL [Concomitant]
     Active Substance: CHOLECALCIFEROL
  6. DIMENHYDRINATE [Concomitant]
     Active Substance: DIMENHYDRINATE
  7. DIPHENHYDRAMINE [Concomitant]
     Active Substance: DIPHENHYDRAMINE
  8. LEVOTHYROXINE [Concomitant]
     Active Substance: LEVOTHYROXINE
  9. MELATONIN [Concomitant]
     Active Substance: MELATONIN
  10. MORPHINE [Concomitant]
     Active Substance: MORPHINE
  11. MYCAMINE [Concomitant]
     Active Substance: MICAFUNGIN SODIUM
  12. ONDANSETRON [Concomitant]
     Active Substance: ONDANSETRON
  13. PENTAMIDINE ISETHIONATE [Concomitant]
     Active Substance: PENTAMIDINE ISETHIONATE
  14. PIPERACILLIN SODIUM\TAZOBACTAM SODIUM [Concomitant]
     Active Substance: PIPERACILLIN SODIUM\TAZOBACTAM SODIUM
  15. POLYETHYLENE GLYCOLS [Concomitant]
     Active Substance: POLYETHYLENE GLYCOLS
  16. SULFAMETHOXAZOLE\TRIMETHOPRIM [Concomitant]
     Active Substance: SULFAMETHOXAZOLE\TRIMETHOPRIM
  17. VANCOMYCIN [Concomitant]
     Active Substance: VANCOMYCIN
  18. VORICONAZOLE [Concomitant]
     Active Substance: VORICONAZOLE

REACTIONS (3)
  - Aplastic anaemia [Unknown]
  - Febrile bone marrow aplasia [Unknown]
  - Streptococcal bacteraemia [Unknown]
